FAERS Safety Report 6305632-1 (Version None)
Quarter: 2009Q3

REPORT INFORMATION
  Report Type: 
  Country: None (occurrence: None)
  Receive Date: 20090806
  Receipt Date: 20090729
  Transmission Date: 20100115
  Serious: Yes (Other)
  Sender: FDA-Public Use
  Company Number: GXKR2009GB08635

PATIENT
  Age: 63 Year
  Sex: Female

DRUGS (4)
  1. TEMAZEPAM [Suspect]
     Dosage: 20 MG, QD NOCTE
  2. LORAZEPAM [Suspect]
     Indication: INSOMNIA
     Dosage: 0.5 MG, QD (NOCTE)
  3. MORPHINE [Concomitant]
  4. AMITRIPTYLINE HYDROCHLORIDE [Concomitant]

REACTIONS (6)
  - CONTINUOUS POSITIVE AIRWAY PRESSURE [None]
  - HANGOVER [None]
  - OXYGEN SATURATION DECREASED [None]
  - SLEEP APNOEA SYNDROME [None]
  - SOMNOLENCE [None]
  - TACHYCARDIA [None]
